FAERS Safety Report 6165620-5 (Version None)
Quarter: 2009Q2

REPORT INFORMATION
  Report Type: 
  Country: None (occurrence: None)
  Receive Date: 20090421
  Receipt Date: 20080404
  Transmission Date: 20091009
  Serious: Yes (Other)
  Sender: FDA-Public Use
  Company Number: 47038

PATIENT
  Sex: Female

DRUGS (1)
  1. DOXYCYCLINE [Suspect]
     Indication: LYME DISEASE
     Dosage: 400MG/INFUSED FOR 4 HOURS/5 DAYS A WEEK
     Dates: start: 20070813, end: 20070914

REACTIONS (3)
  - ERYTHEMA [None]
  - GASTRITIS [None]
  - NAUSEA [None]
